FAERS Safety Report 8921010 (Version 1)
Quarter: 2012Q4

REPORT INFORMATION
  Report Type: 
  Country: DE (occurrence: DE)
  Receive Date: 20121121
  Receipt Date: 20121121
  Transmission Date: 20130627
  Serious: Yes (Hospitalization, Other)
  Sender: FDA-Public Use
  Company Number: DE-ELI_LILLY_AND_COMPANY-DE201211003886

PATIENT
  Sex: Male
  Weight: 100 kg

DRUGS (3)
  1. CYMBALTA [Suspect]
     Indication: DEPRESSION
     Dosage: 60 mg, UNK
     Dates: start: 201110
  2. CYMBALTA [Suspect]
     Dosage: 120 mg, UNK
     Route: 048
     Dates: start: 201111, end: 201205
  3. TRANCOLONG [Concomitant]

REACTIONS (5)
  - Liver disorder [Unknown]
  - Hepatic steatosis [Unknown]
  - Hepatic cyst [Unknown]
  - Pancreatic steatosis [Unknown]
  - Splenomegaly [Unknown]
